FAERS Safety Report 5060494-8 (Version None)
Quarter: 2006Q2

REPORT INFORMATION
  Report Type: 
  Country: None (occurrence: None)
  Receive Date: 20060630
  Receipt Date: 20051013
  Transmission Date: 20061013
  Serious: Yes (Hospitalization)
  Sender: FDA-Public Use
  Company Number: VISP-PR-0510S-0528

PATIENT
  Sex: Female

DRUGS (1)
  1. VISIPAQUE [Suspect]
     Indication: PNEUMONIA
     Dosage: 70 ML, SINGLE DOSE, I.V.
     Route: 042
     Dates: start: 20051007, end: 20051007

REACTIONS (2)
  - CEREBROVASCULAR ACCIDENT [None]
  - PULMONARY OEDEMA [None]
